FAERS Safety Report 4887592-3 (Version None)
Quarter: 2006Q1

REPORT INFORMATION
  Report Type: 
  Country: None (occurrence: None)
  Receive Date: 20060119
  Receipt Date: 20060119
  Transmission Date: 20060701
  Serious: No
  Sender: FDA-Public Use
  Company Number: None

PATIENT
  Age: 54 Year
  Sex: Male
  Weight: 62.1428 kg

DRUGS (1)
  1. SARGRAMOSTIN IV [Suspect]
     Indication: WHITE BLOOD CELL COUNT INCREASED
     Dosage: 420 MCG Q 7 DAYS
     Route: 042

REACTIONS (6)
  - CHEST DISCOMFORT [None]
  - DYSPNOEA [None]
  - HYPERHIDROSIS [None]
  - HYPOTENSION [None]
  - MALAISE [None]
  - TACHYCARDIA [None]
